FAERS Safety Report 7105676-6 (Version None)
Quarter: 2010Q4

REPORT INFORMATION
  Report Type: 
  Country: None (occurrence: None)
  Receive Date: 20101116
  Receipt Date: 20101109
  Transmission Date: 20110411
  Serious: Yes (Hospitalization, Other)
  Sender: FDA-Public Use
  Company Number: US-GENZYME-RENA-1000784

PATIENT
  Sex: Male

DRUGS (16)
  1. RENVELA [Suspect]
     Indication: HYPERPHOSPHATAEMIA
     Dosage: 1.6 G, TID
     Route: 048
     Dates: start: 20100720, end: 20100722
  2. RENAGEL [Suspect]
     Indication: HYPERPHOSPHATAEMIA
     Dosage: 0.8 G, QD
     Route: 048
     Dates: end: 20100720
  3. ALTACE [Concomitant]
     Dosage: UNK
     Route: 065
  4. NYDOR [Concomitant]
     Dosage: UNK
     Route: 065
  5. CLONIDINE [Concomitant]
     Route: 065
  6. LASIX [Concomitant]
     Dosage: UNK
     Route: 065
  7. KEPPRA [Concomitant]
     Route: 065
  8. LEXAPRO [Concomitant]
     Route: 065
  9. ALLOPURINOL [Concomitant]
     Route: 065
  10. ALBUTEROL [Concomitant]
     Dosage: UNK
     Route: 065
  11. ASPIRIN [Concomitant]
     Route: 065
  12. PLAVIX [Concomitant]
     Route: 065
  13. PREDNISONE [Concomitant]
     Route: 065
  14. PRILOSEC [Concomitant]
     Route: 065
  15. NITROGLYCERIN [Concomitant]
     Dosage: UNK
     Route: 065
  16. ULTRAM [Concomitant]
     Dosage: UNK
     Route: 065

REACTIONS (3)
  - CARDIAC FAILURE CONGESTIVE [None]
  - CEREBROVASCULAR ACCIDENT [None]
  - HYPERKALAEMIA [None]
